FAERS Safety Report 14347710 (Version 2)
Quarter: 2018Q2

REPORT INFORMATION
  Report Type: Spontaneous
  Country: GB (occurrence: GB)
  Receive Date: 20180103
  Receipt Date: 20180625
  Transmission Date: 20180711
  Serious: Yes (Other)
  Sender: FDA-Public Use
  Company Number: GB-MYLANLABS-2017M1083779

PATIENT
  Age: 34 Year
  Sex: Female
  Weight: 95.25 kg

DRUGS (2)
  1. CLARITHROMYCIN. [Suspect]
     Active Substance: CLARITHROMYCIN
     Indication: PRODUCT USED FOR UNKNOWN INDICATION
     Dosage: UNK
     Route: 065
  2. FLUCLOXACILLIN SODIUM [Interacting]
     Active Substance: FLUCLOXACILLIN
     Indication: INFECTED CYST
     Dosage: 500 MG, UNK
     Route: 048

REACTIONS (3)
  - Drug interaction [Unknown]
  - Eructation [Unknown]
  - Nausea [Not Recovered/Not Resolved]

NARRATIVE: CASE EVENT DATE: 20171202
